FAERS Safety Report 22520169 (Version 1)
Quarter: 2023Q2

REPORT INFORMATION
  Report Type: Spontaneous
  Country: US (occurrence: None)
  Receive Date: 20230602
  Receipt Date: 20230602
  Transmission Date: 20230722
  Serious: No
  Sender: FDA-Public Use
  Company Number: None

PATIENT
  Age: 57 Year
  Sex: Female
  Weight: 264.0 kg

DRUGS (1)
  1. CIMZIA [Suspect]
     Active Substance: CERTOLIZUMAB PEGOL
     Indication: Rheumatoid arthritis
     Dosage: FREQUENCY : AS DIRECTED;?INJCCT 400MG (2 VIALS) SUBCUTANCOUSLY AT WCCKS 0, 2, \T\ 4 AS DIRCCTCD?
     Route: 058
     Dates: start: 202303

REACTIONS (1)
  - Sinusitis [None]
